FAERS Safety Report 11950234 (Version 1)
Quarter: 2016Q1

REPORT INFORMATION
  Report Type: Spontaneous
  Country: US (occurrence: US)
  Receive Date: 20160126
  Receipt Date: 20160126
  Transmission Date: 20160526
  Serious: No
  Sender: FDA-Public Use
  Company Number: US-DEXPHARM-20151662

PATIENT
  Age: 58 Year
  Sex: Female
  Weight: 69.39 kg

DRUGS (2)
  1. OMEPRAZOLE DELAYED RELEASE [Suspect]
     Active Substance: OMEPRAZOLE
     Indication: OESOPHAGEAL MASS
     Route: 048
     Dates: start: 2014
  2. OMEPRAZOLE DELAYED RELEASE [Suspect]
     Active Substance: OMEPRAZOLE
     Indication: OESOPHAGEAL MASS
     Dosage: ONCE DAILY
     Route: 048
     Dates: start: 2014, end: 2014

REACTIONS (2)
  - Drug ineffective [Recovered/Resolved]
  - Overdose [Unknown]

NARRATIVE: CASE EVENT DATE: 2014
